FAERS Safety Report 23584997 (Version 3)
Quarter: 2024Q2

REPORT INFORMATION
  Report Type: Spontaneous
  Country: US (occurrence: US)
  Receive Date: 20240301
  Receipt Date: 20240612
  Transmission Date: 20240716
  Serious: Yes (Other)
  Sender: FDA-Public Use
  Company Number: US-ABBVIE-5657259

PATIENT
  Sex: Female

DRUGS (1)
  1. LUPRON [Suspect]
     Active Substance: LEUPROLIDE ACETATE
     Indication: Uterine leiomyoma
     Dosage: FORM STRENGTH: 3.75 MILLIGRAM
     Route: 030

REACTIONS (30)
  - Cataract [Unknown]
  - Liver injury [Unknown]
  - Injury [Unknown]
  - Alopecia [Unknown]
  - Arthropathy [Not Recovered/Not Resolved]
  - Hair injury [Unknown]
  - Toxicity to various agents [Unknown]
  - Pancreatic disorder [Not Recovered/Not Resolved]
  - Atrophy [Not Recovered/Not Resolved]
  - Eye injury [Not Recovered/Not Resolved]
  - Renal injury [Not Recovered/Not Resolved]
  - Nerve compression [Not Recovered/Not Resolved]
  - Female reproductive tract disorder [Not Recovered/Not Resolved]
  - Ear pruritus [Unknown]
  - Neuropathy peripheral [Unknown]
  - Back pain [Unknown]
  - Hypoaesthesia [Unknown]
  - Burning sensation [Unknown]
  - Tooth loss [Unknown]
  - Ear inflammation [Unknown]
  - Pain in extremity [Unknown]
  - Nerve injury [Unknown]
  - Eye pain [Unknown]
  - Gastrointestinal injury [Unknown]
  - Spleen disorder [Unknown]
  - Abdominal distension [Unknown]
  - Hormone level abnormal [Unknown]
  - Urinary tract disorder [Unknown]
  - Osteoporosis [Unknown]
  - Eye inflammation [Unknown]
